FAERS Safety Report 10010085 (Version 2)
Quarter: 2014Q1

REPORT INFORMATION
  Report Type: Spontaneous
  Country: US (occurrence: US)
  Receive Date: 20140312
  Receipt Date: 20140312
  Transmission Date: 20141002
  Serious: No
  Sender: FDA-Public Use
  Company Number: US-INCYTE CORPORATION-2013IN000363

PATIENT
  Sex: Male
  Weight: 82.99 kg

DRUGS (4)
  1. JAKAFI [Suspect]
     Indication: MYELOFIBROSIS
     Dosage: 5 MG, BID
     Route: 048
     Dates: start: 20130130
  2. JAKAFI [Suspect]
     Dosage: 10 MG, BID
     Route: 048
  3. TIKOSYN [Concomitant]
  4. LIPITOR [Concomitant]

REACTIONS (3)
  - Pruritus [Recovered/Resolved]
  - Nasopharyngitis [Not Recovered/Not Resolved]
  - Hordeolum [Not Recovered/Not Resolved]
